FAERS Safety Report 9233354 (Version 1)
Quarter: 2013Q1

REPORT INFORMATION
  Report Type: Spontaneous
  Country: US (occurrence: None)
  Receive Date: 20121031
  Receipt Date: 20121031
  Transmission Date: 20140127
  Serious: No
  Sender: FDA-Public Use
  Company Number: PHEH2012US014386

PATIENT
  Age: 58 Year
  Sex: Female
  Weight: 98.9 kg

DRUGS (6)
  1. GILENYA (FTY) CAPSULE, 0.5 MG [Suspect]
     Indication: MULTIPLE SCLEROSIS
     Route: 048
     Dates: start: 20120607
  2. ENABLEX (DARIFENACIN HYDROBROMIDE) [Concomitant]
  3. BACLOFEN (BACLOFEN) [Concomitant]
  4. NEXIUM (ESOMEPRAZOLE MAGNESIUM) [Concomitant]
  5. RAMIPRIL (RAMIPRIL) [Concomitant]
  6. MODAFINIL (MODAFINIL) [Concomitant]

REACTIONS (3)
  - Abnormal sensation in eye [None]
  - Visual acuity reduced [None]
  - Vision blurred [None]
